FAERS Safety Report 6497690-9 (Version None)
Quarter: 2009Q4

REPORT INFORMATION
  Report Type: 
  Country: None (occurrence: None)
  Receive Date: 20091125
  Receipt Date: 20090311
  Transmission Date: 20100525
  Serious: Yes (Hospitalization)
  Sender: FDA-Public Use
  Company Number: 2009BH003921

PATIENT
  Age: 62 Year
  Sex: Male

DRUGS (4)
  1. DIANEAL [Suspect]
     Indication: PERITONEAL DIALYSIS
     Dosage: 10 L ; EVERY DAY ; IP
     Route: 033
     Dates: start: 20080801
  2. NORVASC [Suspect]
     Indication: HYPERTENSION
     Dates: end: 20090301
  3. TOPROL-XL [Suspect]
     Indication: HYPERTENSION
     Dates: end: 20090301
  4. LISINOPRIL [Suspect]
     Indication: HYPERTENSION

REACTIONS (2)
  - HYPOTENSION [None]
  - PAIN IN EXTREMITY [None]
